FAERS Safety Report 9607748 (Version 4)
Quarter: 2014Q4

REPORT INFORMATION
  Report Type: Spontaneous
  Country: BR (occurrence: BR)
  Receive Date: 20131009
  Receipt Date: 20141216
  Transmission Date: 20150529
  Serious: Yes (Hospitalization)
  Sender: FDA-Public Use
  Company Number: BR-NOVOPROD-389379

PATIENT
  Age: 76 Year
  Sex: Female
  Weight: 91.8 kg

DRUGS (1)
  1. PROTAPHANE [Suspect]
     Active Substance: INSULIN HUMAN
     Indication: DIABETES MELLITUS
     Dosage: 60 IU, QD
     Route: 065
     Dates: start: 20120412, end: 20130430

REACTIONS (1)
  - Injection site cellulitis [Recovered/Resolved]

NARRATIVE: CASE EVENT DATE: 20130419
